FAERS Safety Report 8936393 (Version 3)
Quarter: 2013Q4

REPORT INFORMATION
  Report Type: Spontaneous
  Country: US (occurrence: US)
  Receive Date: 20121130
  Receipt Date: 20131214
  Transmission Date: 20140711
  Serious: No
  Sender: FDA-Public Use
  Company Number: US-B.I. PHARMACEUTICALS,INC./RIDGEFIELD-2012-BI-00391BP

PATIENT
  Sex: Female
  Weight: 90.72 kg

DRUGS (8)
  1. COMBIVENT [Suspect]
     Indication: CHRONIC OBSTRUCTIVE PULMONARY DISEASE
     Dosage: DOSE PER APPLICATION: 18MCG / 103 MCG, DAILY DOSE: 54MCG/ 309MCG,
     Route: 055
  2. COMBIVENT [Suspect]
     Indication: BRONCHIAL HYPERREACTIVITY
     Dosage: DOSE PER APPLICATION: 18MCG/103MCG, DAILY DOSE: 144MCG/824MCG
     Route: 055
     Dates: start: 1998, end: 201308
  3. COMBIVENT [Suspect]
     Dosage: DOSE PER APPLICATION: 18MCG/103MCG, DAILY DOSE: 144MCG/824MCG
     Route: 055
     Dates: start: 2003, end: 20130801
  4. FLOVENT [Concomitant]
     Indication: BRONCHIAL HYPERREACTIVITY
     Route: 055
     Dates: start: 2003
  5. FLOVENT [Concomitant]
     Indication: CHRONIC OBSTRUCTIVE PULMONARY DISEASE
  6. DUO NEBULIZER [Concomitant]
     Indication: BRONCHIAL HYPERREACTIVITY
     Dosage: FORMULATION: INHALATION SOLUTION
     Route: 055
     Dates: start: 2003
  7. DUO NEBULIZER [Concomitant]
     Indication: CHRONIC OBSTRUCTIVE PULMONARY DISEASE
  8. SYNTHROID [Concomitant]
     Indication: HYPOTHYROIDISM
     Route: 048
     Dates: start: 1983

REACTIONS (6)
  - Bronchitis [Recovered/Resolved]
  - Pneumonia [Recovered/Resolved]
  - Dyspnoea [Not Recovered/Not Resolved]
  - Lyme disease [Not Recovered/Not Resolved]
  - Drug ineffective [Not Recovered/Not Resolved]
  - Off label use [Recovered/Resolved]
